FAERS Safety Report 24343385 (Version 1)
Quarter: 2024Q3

REPORT INFORMATION
  Report Type: Spontaneous
  Country: US (occurrence: US)
  Receive Date: 20240920
  Receipt Date: 20240920
  Transmission Date: 20241017
  Serious: Yes (Life-Threatening, Other)
  Sender: INTERNATIONAL MEDICATION SYSTEM
  Company Number: US-International Medication Systems, Limited-2161854

PATIENT
  Age: 79 Year
  Sex: Female
  Weight: 101.9 kg

DRUGS (3)
  1. REGADENOSON [Suspect]
     Active Substance: REGADENOSON
     Indication: Cardiac stress test
     Dates: start: 20240614, end: 20240614
  2. ONDANSETRON [Concomitant]
     Active Substance: ONDANSETRON
  3. TECHNETIUM TC-99M SESTAMIBI KIT [Concomitant]
     Active Substance: TECHNETIUM TC-99M SESTAMIBI

REACTIONS (3)
  - Cardio-respiratory arrest [Unknown]
  - Nausea [Unknown]
  - Dizziness [Unknown]

NARRATIVE: CASE EVENT DATE: 20240614
